FAERS Safety Report 21975065 (Version 4)
Quarter: 2023Q2

REPORT INFORMATION
  Report Type: Report from Study
  Country: US (occurrence: US)
  Receive Date: 20230209
  Receipt Date: 20230615
  Transmission Date: 20230722
  Serious: Yes (Death, Hospitalization)
  Sender: FDA-Public Use
  Company Number: US-BIOGEN-2023BI01185220

PATIENT
  Age: 78 Year
  Sex: Male

DRUGS (23)
  1. ADUHELM [Suspect]
     Active Substance: ADUCANUMAB-AVWA
     Indication: Dementia Alzheimer^s type
     Dosage: 300MG VIAL; INFUSE 6.8 ML INTRAVENOUSLY IN 100 ML NORMAL?SALINE EVERY 21-30 DAYS AS DIRECTED
     Route: 050
  2. ADUHELM [Suspect]
     Active Substance: ADUCANUMAB-AVWA
     Dosage: Q21-28 DAYS, NUMBER OF INFUSIONS: 4
     Route: 050
     Dates: start: 20210630
  3. ADUHELM [Suspect]
     Active Substance: ADUCANUMAB-AVWA
     Dosage: Q21-28 DAYS, NUMBER OF INFUSIONS: 2
     Route: 050
     Dates: start: 20211118
  4. ADUHELM [Suspect]
     Active Substance: ADUCANUMAB-AVWA
     Dosage: Q21-28 DAYS, NUMBER OF INFUSIONS: 2
     Route: 050
     Dates: start: 20220113
  5. ADUHELM [Suspect]
     Active Substance: ADUCANUMAB-AVWA
     Dosage: Q21-28 DAYS, NUMBER OF INFUSIONS: 2
     Route: 050
     Dates: start: 20220316
  6. ADUHELM [Suspect]
     Active Substance: ADUCANUMAB-AVWA
     Dosage: Q21-28 DAYS, NUMBER OF INFUSIONS: 2
     Route: 050
     Dates: start: 20220512
  7. ADUHELM [Suspect]
     Active Substance: ADUCANUMAB-AVWA
     Dosage: Q21-28 DAYS, NUMBER OF INFUSIONS: 2
     Route: 050
     Dates: start: 20220629
  8. ADUHELM [Suspect]
     Active Substance: ADUCANUMAB-AVWA
     Dosage: Q21-28 DAYS, NUMBER OF INFUSIONS: 2
     Route: 050
     Dates: start: 20220818
  9. ADUHELM [Suspect]
     Active Substance: ADUCANUMAB-AVWA
     Dosage: Q21-28 DAYS, NUMBER OF INFUSIONS: 2
     Route: 050
     Dates: start: 20221013
  10. ADUHELM [Suspect]
     Active Substance: ADUCANUMAB-AVWA
     Dosage: Q21-28 DAYS, NUMBER OF INFUSIONS: 2
     Route: 050
     Dates: start: 20221207, end: 20230128
  11. MIDODRINE HYDROCHLORIDE [Concomitant]
     Active Substance: MIDODRINE HYDROCHLORIDE
     Indication: Product used for unknown indication
     Route: 050
  12. LEVOTHYROXINE SODIUM [Concomitant]
     Active Substance: LEVOTHYROXINE SODIUM
     Indication: Product used for unknown indication
     Route: 050
  13. MEMANTINE HYDROCHLORIDE [Concomitant]
     Active Substance: MEMANTINE HYDROCHLORIDE
     Indication: Product used for unknown indication
     Route: 050
  14. VITAMIN D3 [Concomitant]
     Active Substance: CHOLECALCIFEROL
     Indication: Product used for unknown indication
     Route: 050
  15. PEPCID COMPLETE [Concomitant]
     Active Substance: CALCIUM CARBONATE\FAMOTIDINE\MAGNESIUM HYDROXIDE
     Indication: Product used for unknown indication
     Dosage: IN AM
     Route: 050
  16. DONEPEZIL HYDROCHLORIDE [Concomitant]
     Active Substance: DONEPEZIL HYDROCHLORIDE
     Indication: Product used for unknown indication
     Route: 050
  17. SIMVASTATIN [Concomitant]
     Active Substance: SIMVASTATIN
     Indication: Product used for unknown indication
     Route: 050
  18. VICTOZA [Concomitant]
     Active Substance: LIRAGLUTIDE
     Indication: Product used for unknown indication
     Dosage: 1.2/3 ML, FOR 7 DAYS (STOPPED)
     Route: 050
  19. CELEBREX [Concomitant]
     Active Substance: CELECOXIB
     Indication: Product used for unknown indication
     Route: 050
  20. SYNTHROID [Concomitant]
     Active Substance: LEVOTHYROXINE SODIUM
     Indication: Product used for unknown indication
     Route: 050
  21. NAMENDA XR [Concomitant]
     Active Substance: MEMANTINE HYDROCHLORIDE
     Indication: Product used for unknown indication
     Route: 050
  22. COLACE [Concomitant]
     Active Substance: DOCUSATE SODIUM
     Indication: Product used for unknown indication
     Route: 050
  23. PLAVIX [Concomitant]
     Active Substance: CLOPIDOGREL BISULFATE
     Indication: Product used for unknown indication
     Route: 050

REACTIONS (3)
  - COVID-19 [Fatal]
  - Peripheral artery thrombosis [Not Recovered/Not Resolved]
  - Prescribed underdose [Recovered/Resolved]

NARRATIVE: CASE EVENT DATE: 20210630
